FAERS Safety Report 21491785 (Version 1)
Quarter: 2022Q4

REPORT INFORMATION
  Report Type: Spontaneous
  Country: US (occurrence: US)
  Receive Date: 20221021
  Receipt Date: 20221021
  Transmission Date: 20230113
  Serious: Yes (Other)
  Sender: FDA-Public Use
  Company Number: US-TEVA-2022-US-2816983

PATIENT
  Age: 65 Year
  Sex: Male

DRUGS (3)
  1. WARFARIN [Suspect]
     Active Substance: WARFARIN
     Indication: Atrial fibrillation
     Route: 065
     Dates: start: 2022
  2. BOSULIF [Suspect]
     Active Substance: BOSUTINIB MONOHYDRATE
     Indication: Chronic leukaemia
     Dosage: 400MG
     Route: 065
     Dates: start: 20220712
  3. TASIGNA [Concomitant]
     Active Substance: NILOTINIB
     Indication: Product used for unknown indication
     Dates: end: 2022

REACTIONS (6)
  - Pericardial effusion [Unknown]
  - Full blood count increased [Unknown]
  - Abdominal discomfort [Recovered/Resolved]
  - Eating disorder [Recovered/Resolved]
  - Weight increased [Recovered/Resolved]
  - Fluid retention [Unknown]

NARRATIVE: CASE EVENT DATE: 20220101
